FAERS Safety Report 9738418 (Version 1)
Quarter: 2013Q4

REPORT INFORMATION
  Report Type: Spontaneous
  Country: GB (occurrence: GB)
  Receive Date: 20131208
  Receipt Date: 20131208
  Transmission Date: 20140711
  Serious: Yes (Hospitalization)
  Sender: FDA-Public Use
  Company Number: GB-ROCHE-1313636

PATIENT
  Age: 4 Year
  Sex: Male

DRUGS (1)
  1. TAMIFLU [Suspect]
     Indication: TRISOMY 21
     Route: 065

REACTIONS (1)
  - Pneumonia [Recovered/Resolved]
